FAERS Safety Report 14557088 (Version 3)
Quarter: 2018Q2

REPORT INFORMATION
  Report Type: Spontaneous
  Country: PT (occurrence: PT)
  Receive Date: 20180221
  Receipt Date: 20180511
  Transmission Date: 20180711
  Serious: Yes (Other)
  Sender: FDA-Public Use
  Company Number: PT-AUROBINDO-AUR-APL-2018-005268

PATIENT
  Age: 17 Year

DRUGS (2)
  1. IBUPROFEN. [Suspect]
     Active Substance: IBUPROFEN
     Indication: DRUG PROVOCATION TEST
     Dosage: 40 MG
     Route: 048
  2. IBUPROFEN. [Suspect]
     Active Substance: IBUPROFEN
     Dosage: 40 MG
     Route: 048

REACTIONS (8)
  - Flushing [Unknown]
  - Drug hypersensitivity [Unknown]
  - Hypoaesthesia [Unknown]
  - Off label use [Unknown]
  - Lip oedema [Unknown]
  - Generalised oedema [Unknown]
  - Oedema peripheral [Unknown]
  - Palmar erythema [Unknown]

NARRATIVE: CASE EVENT DATE: 2015
